FAERS Safety Report 13794244 (Version 1)
Quarter: 2017Q3

REPORT INFORMATION
  Report Type: Spontaneous
  Country: US (occurrence: US)
  Receive Date: 20170726
  Receipt Date: 20170726
  Transmission Date: 20171127
  Serious: Yes (Other)
  Sender: FDA-Public Use
  Company Number: None

PATIENT
  Sex: Male

DRUGS (9)
  1. RISPERDAL [Concomitant]
     Active Substance: RISPERIDONE
  2. SENNA [Concomitant]
     Active Substance: SENNA LEAF\SENNOSIDES\SENNOSIDES A AND B
  3. KLOR-CON [Concomitant]
     Active Substance: POTASSIUM CHLORIDE
  4. OXYCODONE [Concomitant]
     Active Substance: OXYCODONE
  5. FERROUS SULFATE. [Concomitant]
     Active Substance: FERROUS SULFATE
  6. FLUOXETINE [Concomitant]
     Active Substance: FLUOXETINE HYDROCHLORIDE
  7. ZOFRAN [Concomitant]
     Active Substance: ONDANSETRON HYDROCHLORIDE
  8. LONSURF [Suspect]
     Active Substance: TIPIRACIL HYDROCHLORIDE\TRIFLURIDINE
     Indication: COLON CANCER
     Dosage: 65MG BID ONDAYS 1-5, 8-12 ORAL
     Route: 048
     Dates: start: 20170316
  9. MORPHINE [Concomitant]
     Active Substance: MORPHINE

REACTIONS (4)
  - Dyspnoea [None]
  - Psychotic disorder [None]
  - Gait disturbance [None]
  - Dizziness [None]
